FAERS Safety Report 6314050-1 (Version None)
Quarter: 2009Q3

REPORT INFORMATION
  Report Type: 
  Country: None (occurrence: None)
  Receive Date: 20090814
  Receipt Date: 20090731
  Transmission Date: 20100115
  Serious: Yes (Hospitalization)
  Sender: FDA-Public Use
  Company Number: 1000008035

PATIENT
  Age: 86 Year
  Sex: Male

DRUGS (5)
  1. CITALOPRAM HYDROBROMIDE [Suspect]
     Indication: AGGRESSION
     Dosage: 20 MG (20 MG, 1 IN 1 D), ORAL
     Route: 048
     Dates: start: 20090703, end: 20090709
  2. ACTISKENAN (CAPSULES) [Concomitant]
  3. XATRAL [Concomitant]
  4. LAMICTAL [Concomitant]
  5. FORLAX [Suspect]

REACTIONS (8)
  - COMA [None]
  - EPILEPSY [None]
  - EXTENSOR PLANTAR RESPONSE [None]
  - GAZE PALSY [None]
  - HYPERTONIA [None]
  - HYPOTONIA [None]
  - ISCHAEMIC STROKE [None]
  - MIOSIS [None]
